FAERS Safety Report 5632173-7 (Version None)
Quarter: 2008Q1

REPORT INFORMATION
  Report Type: 
  Country: None (occurrence: None)
  Receive Date: 20080220
  Receipt Date: 20080212
  Transmission Date: 20080703
  Serious: Yes (Hospitalization, Congenital Anomaly)
  Sender: FDA-Public Use
  Company Number: SE-AVENTIS-200811391GDDC

PATIENT
  Age: 1 Day
  Sex: Male
  Weight: 2.95 kg

DRUGS (2)
  1. RIFADIN [Suspect]
     Route: 064
     Dates: start: 20060101
  2. TIBINIDE [Suspect]
     Route: 064
     Dates: start: 20060101

REACTIONS (2)
  - DRUG EXPOSURE DURING PREGNANCY [None]
  - HYPOTONIA NEONATAL [None]
